FAERS Safety Report 6232005-2 (Version None)
Quarter: 2009Q2

REPORT INFORMATION
  Report Type: 
  Country: None (occurrence: None)
  Receive Date: 20090612
  Receipt Date: 20090601
  Transmission Date: 20091009
  Serious: Yes (Disabling)
  Sender: FDA-Public Use
  Company Number: AU-WYE-G03650209

PATIENT
  Sex: Female

DRUGS (3)
  1. EFFEXOR XR [Suspect]
     Indication: NEUROTRANSMITTER LEVEL ALTERED
     Dosage: VARIOUS DOSES ; TRYING TO COME OFF 37.5 MG DAILY ; 75MG ; 150MG ; 37.5 MG EVERY SECOND DAY
     Dates: end: 20090501
  2. EFFEXOR XR [Suspect]
     Indication: NEUROTRANSMITTER LEVEL ALTERED
     Dosage: VARIOUS DOSES ; TRYING TO COME OFF 37.5 MG DAILY ; 75MG ; 150MG ; 37.5 MG EVERY SECOND DAY
     Dates: start: 20090301
  3. EFFEXOR XR [Suspect]
     Indication: NEUROTRANSMITTER LEVEL ALTERED
     Dosage: VARIOUS DOSES ; TRYING TO COME OFF 37.5 MG DAILY ; 75MG ; 150MG ; 37.5 MG EVERY SECOND DAY

REACTIONS (21)
  - AMNESIA [None]
  - ANGER [None]
  - BALANCE DISORDER [None]
  - COLD SWEAT [None]
  - DIZZINESS [None]
  - DRUG WITHDRAWAL SYNDROME [None]
  - DRY MOUTH [None]
  - DYSGEUSIA [None]
  - EMOTIONAL DISORDER [None]
  - HYPERACUSIS [None]
  - IMPAIRED DRIVING ABILITY [None]
  - INDIFFERENCE [None]
  - INSOMNIA [None]
  - IRRITABILITY [None]
  - NAUSEA [None]
  - NIGHTMARE [None]
  - NONSPECIFIC REACTION [None]
  - PALPITATIONS [None]
  - PARAESTHESIA [None]
  - PHOTOPHOBIA [None]
  - VERTIGO [None]
